FAERS Safety Report 13002358 (Version 1)
Quarter: 2016Q4

REPORT INFORMATION
  Report Type: Spontaneous
  Country: US (occurrence: US)
  Receive Date: 20161206
  Receipt Date: 20161206
  Transmission Date: 20170207
  Serious: No
  Sender: FDA-Public Use
  Company Number: US-BAUSCH-BL-2016-005302

PATIENT
  Sex: Female

DRUGS (3)
  1. SPIRONOLACTONE. [Concomitant]
     Active Substance: SPIRONOLACTONE
     Indication: HORMONE LEVEL ABNORMAL
     Route: 048
  2. ACANYA [Suspect]
     Active Substance: BENZOYL PEROXIDE\CLINDAMYCIN PHOSPHATE
     Indication: ACNE
     Route: 061
     Dates: start: 201602
  3. HYDROQUINONE. [Concomitant]
     Active Substance: HYDROQUINONE
     Indication: SCAR
     Dosage: EXTERNALLY TO SCARRING ON THE FACE ONCE NIGHTLY
     Route: 061

REACTIONS (1)
  - Application site exfoliation [Not Recovered/Not Resolved]
